FAERS Safety Report 13472332 (Version 1)
Quarter: 2017Q2

REPORT INFORMATION
  Report Type: Spontaneous
  Country: US (occurrence: US)
  Receive Date: 20170424
  Receipt Date: 20170424
  Transmission Date: 20170830
  Serious: No
  Sender: FDA-Public Use
  Company Number: None

PATIENT
  Sex: Female

DRUGS (1)
  1. GENERIC VIVELLE DOT [Suspect]
     Active Substance: ESTRADIOL

REACTIONS (2)
  - Rash [None]
  - Product adhesion issue [None]
